FAERS Safety Report 5835224-X (Version None)
Quarter: 2008Q3

REPORT INFORMATION
  Report Type: 
  Country: None (occurrence: None)
  Receive Date: 20080806
  Receipt Date: 20080801
  Transmission Date: 20090109
  Serious: Yes (Hospitalization, Disabling)
  Sender: FDA-Public Use
  Company Number: DE-BAYER-200813595GPV

PATIENT
  Age: 41 Year
  Sex: Male

DRUGS (1)
  1. AVELOX [Suspect]
     Indication: SINOBRONCHITIS
     Route: 048
     Dates: start: 20080208, end: 20080211

REACTIONS (1)
  - CEREBROVASCULAR ACCIDENT [None]
